FAERS Safety Report 7583699-0 (Version None)
Quarter: 2011Q2

REPORT INFORMATION
  Report Type: 
  Country: None (occurrence: None)
  Receive Date: 20110630
  Receipt Date: 20110610
  Transmission Date: 20111010
  Serious: Yes (Other)
  Sender: FDA-Public Use
  Company Number: B0726859A

PATIENT
  Age: 57 Year
  Sex: Female

DRUGS (1)
  1. PROMACTA [Suspect]
     Indication: THROMBOCYTOPENIC PURPURA
     Route: 048
     Dates: start: 20110201, end: 20110407

REACTIONS (7)
  - NAUSEA [None]
  - HEADACHE [None]
  - VISION BLURRED [None]
  - DIZZINESS [None]
  - DEPRESSED MOOD [None]
  - ECCHYMOSIS [None]
  - GINGIVAL BLEEDING [None]
